FAERS Safety Report 6189041-4 (Version None)
Quarter: 2009Q2

REPORT INFORMATION
  Report Type: 
  Country: None (occurrence: None)
  Receive Date: 20090513
  Receipt Date: 20090501
  Transmission Date: 20091009
  Serious: Yes (Other)
  Sender: FDA-Public Use
  Company Number: CA-PFIZER INC-2008032821

PATIENT
  Age: 44 Year

DRUGS (3)
  1. CHAMPIX [Suspect]
     Dosage: 1 MG, 2X/DAY
     Route: 048
     Dates: start: 20070609
  2. SPIRIVA [Concomitant]
     Dosage: 18 UG, 1X/DAY
  3. VENTOLIN [Concomitant]
     Dosage: UNK IU, UNK

REACTIONS (2)
  - HEART RATE IRREGULAR [None]
  - HYPERTENSION [None]
